FAERS Safety Report 6405103-8 (Version None)
Quarter: 2009Q4

REPORT INFORMATION
  Report Type: 
  Country: None (occurrence: None)
  Receive Date: 20091019
  Receipt Date: 20091005
  Transmission Date: 20100525
  Serious: Yes (Other)
  Sender: FDA-Public Use
  Company Number: JP-ROCHE-581687

PATIENT
  Age: 76 Year
  Sex: Male

DRUGS (2)
  1. ROCEPHIN [Suspect]
     Indication: RENAL FAILURE CHRONIC
     Route: 042
  2. DALACIN [Concomitant]
     Route: 065

REACTIONS (3)
  - ALTERED STATE OF CONSCIOUSNESS [None]
  - CHOREA [None]
  - CHOREOATHETOSIS [None]
